FAERS Safety Report 8882392 (Version 1)
Quarter: 2012Q4

REPORT INFORMATION
  Report Type: 
  Country: US (occurrence: US)
  Receive Date: 20121105
  Receipt Date: 20121105
  Transmission Date: 20130627
  Serious: Yes (Hospitalization, Other)
  Sender: FDA-Public Use
  Company Number: US-SANOFI-AVENTIS-2012SA078647

PATIENT
  Age: 83 Year
  Sex: Male

DRUGS (2)
  1. LANTUS [Suspect]
     Indication: TYPE II DIABETES MELLITUS
     Route: 058
  2. NOVOLOG [Suspect]
     Indication: TYPE II DIABETES MELLITUS
     Route: 065

REACTIONS (5)
  - Atrial fibrillation [Unknown]
  - Vertigo [Unknown]
  - Surgery [Unknown]
  - Rash pruritic [Unknown]
  - Blood glucose increased [Unknown]
